FAERS Safety Report 22953298 (Version 5)
Quarter: 2025Q4

REPORT INFORMATION
  Report Type: Report from Study
  Country: TR (occurrence: TR)
  Receive Date: 20230918
  Receipt Date: 20251208
  Transmission Date: 20260118
  Serious: Yes (Hospitalization, Other)
  Sender: PFIZER
  Company Number: TR-PFIZER INC-PV202300140221

PATIENT
  Age: 57 Year
  Sex: Male
  Weight: 70 kg

DRUGS (5)
  1. ELRANATAMAB [Suspect]
     Active Substance: ELRANATAMAB
     Indication: Plasma cell myeloma refractory
     Dosage: 12 MG (C1D1)
     Dates: start: 202305
  2. ELRANATAMAB [Suspect]
     Active Substance: ELRANATAMAB
     Dosage: 32 MG (C1D4)
  3. ELRANATAMAB [Suspect]
     Active Substance: ELRANATAMAB
     Dosage: 76 MG, WEEKLY (C1D8)
     Route: 058
     Dates: start: 20230530
  4. ELRANATAMAB [Suspect]
     Active Substance: ELRANATAMAB
     Dosage: 152 MG
     Route: 058
  5. ELRANATAMAB [Suspect]
     Active Substance: ELRANATAMAB
     Dosage: 76 MG (WEEKS 3-24)
     Route: 058

REACTIONS (11)
  - Cytokine storm [Recovered/Resolved]
  - Pyrexia [Recovered/Resolved]
  - C-reactive protein increased [Recovered/Resolved]
  - Blood creatinine increased [Recovered/Resolved]
  - Cytokine release syndrome [Recovered/Resolved]
  - Blood lactate dehydrogenase increased [Unknown]
  - Pneumonia [Recovered/Resolved]
  - Asthenia [Recovered/Resolved]
  - Decreased appetite [Recovered/Resolved]
  - Weight decreased [Recovered/Resolved]
  - Accidental overdose [Unknown]

NARRATIVE: CASE EVENT DATE: 20230602
